FAERS Safety Report 9527754 (Version 1)
Quarter: 2013Q3

REPORT INFORMATION
  Report Type: Spontaneous
  Country: US (occurrence: None)
  Receive Date: 20130913
  Receipt Date: 20130913
  Transmission Date: 20140515
  Serious: No
  Sender: FDA-Public Use
  Company Number: 13AE015

PATIENT
  Sex: 0

DRUGS (1)
  1. WALGREENS IBUPROFEN TABLETS [Suspect]

REACTIONS (1)
  - Dysgeusia [None]
